FAERS Safety Report 21378496 (Version 1)
Quarter: 2022Q3

REPORT INFORMATION
  Report Type: Report from Study
  Country: JP (occurrence: JP)
  Receive Date: 20220927
  Receipt Date: 20220927
  Transmission Date: 20221027
  Serious: Yes (Hospitalization, Other)
  Sender: FDA-Public Use
  Company Number: JP-BRISTOL-MYERS SQUIBB COMPANY-BMS-2016-019313

PATIENT
  Age: 80 Year
  Sex: Male
  Weight: 62 kg

DRUGS (17)
  1. YERVOY [Suspect]
     Active Substance: IPILIMUMAB
     Indication: Malignant melanoma stage IV
     Dosage: 3 MG/KG, Q3WK
     Route: 041
     Dates: start: 20160105, end: 20160216
  2. YERVOY [Suspect]
     Active Substance: IPILIMUMAB
     Dosage: 3MG/KG, UNK
     Route: 041
     Dates: start: 20160126, end: 20160126
  3. YERVOY [Suspect]
     Active Substance: IPILIMUMAB
     Dosage: 3MG/KG, UNK
     Route: 041
     Dates: start: 20160216, end: 20160216
  4. OPDIVO [Suspect]
     Active Substance: NIVOLUMAB
     Indication: Metastatic malignant melanoma
     Dosage: 2 MG/KG, Q3WK
     Route: 041
     Dates: start: 20151208, end: 20151208
  5. OPDIVO [Suspect]
     Active Substance: NIVOLUMAB
     Dosage: 2.1 MG/KG, Q3WK
     Route: 041
     Dates: start: 20160628, end: 20160628
  6. OPDIVO [Suspect]
     Active Substance: NIVOLUMAB
     Dosage: 2.1 MG/KG, Q3WK
     Route: 041
     Dates: start: 20160720, end: 20160720
  7. OPDIVO [Suspect]
     Active Substance: NIVOLUMAB
     Dosage: 2.1 MG/KG, Q3WK
     Route: 041
     Dates: start: 20160819, end: 20160819
  8. OPDIVO [Suspect]
     Active Substance: NIVOLUMAB
     Dosage: 2.1 MG/KG, Q3WK
     Route: 041
     Dates: start: 20160916, end: 20160916
  9. OPDIVO [Suspect]
     Active Substance: NIVOLUMAB
     Dosage: 2.1 MG/KG, Q3WK
     Route: 041
     Dates: start: 20161007, end: 20161007
  10. OPDIVO [Suspect]
     Active Substance: NIVOLUMAB
     Dosage: 2 MG/KG, Q3WK
     Route: 041
     Dates: start: 20151006, end: 20151006
  11. OPDIVO [Suspect]
     Active Substance: NIVOLUMAB
     Dosage: 2 MG/KG, Q3WK
     Route: 041
     Dates: start: 20151027, end: 20151027
  12. OPDIVO [Suspect]
     Active Substance: NIVOLUMAB
     Dosage: 2 MG/KG, Q3WK
     Route: 041
     Dates: start: 20151117, end: 20151117
  13. ALSETIN [Concomitant]
     Indication: Dyslipidaemia
     Dosage: 5 MG, QD
     Route: 048
  14. BENIDIPINE HYDROCHLORIDE [Concomitant]
     Active Substance: BENIDIPINE HYDROCHLORIDE
     Indication: Hypertension
     Dosage: 4 MG, BID
     Route: 048
  15. SILODOSIN [Concomitant]
     Active Substance: SILODOSIN
     Indication: Benign prostatic hyperplasia
     Dosage: 4 MG, BID
     Route: 048
  16. CILOSTAZOL [Concomitant]
     Active Substance: CILOSTAZOL
     Indication: Hypertension
     Dosage: 100 MG, BID
     Route: 048
  17. TEPRENONE [Concomitant]
     Active Substance: TEPRENONE
     Indication: Gastric ulcer
     Dosage: 50 MG, BID
     Route: 048
     Dates: start: 201607

REACTIONS (5)
  - Hepatitis [Recovered/Resolved]
  - Dizziness [Recovered/Resolved]
  - Decreased appetite [Recovered/Resolved]
  - Dyspepsia [Recovering/Resolving]
  - Leukoderma [Not Recovered/Not Resolved]

NARRATIVE: CASE EVENT DATE: 20160201
